FAERS Safety Report 4740466-0 (Version None)
Quarter: 2005Q3

REPORT INFORMATION
  Report Type: 
  Country: None (occurrence: None)
  Receive Date: 20050809
  Receipt Date: 20050802
  Transmission Date: 20060218
  Serious: Yes (Hospitalization)
  Sender: FDA-Public Use
  Company Number: GXBR2005US00988

PATIENT
  Sex: Female

DRUGS (1)
  1. LORATADINE [Suspect]
     Dosage: ORAL
     Route: 048

REACTIONS (3)
  - CARDIAC PACEMAKER INSERTION [None]
  - HEART RATE DECREASED [None]
  - HEART VALVE CALCIFICATION [None]
